FAERS Safety Report 8301428-X (Version None)
Quarter: 2012Q2

REPORT INFORMATION
  Report Type: 
  Country: None (occurrence: None)
  Receive Date: 20120420
  Receipt Date: 20120412
  Transmission Date: 20120825
  Serious: Yes (Hospitalization, Other)
  Sender: FDA-Public Use
  Company Number: CA-JNJFOC-20120408313

PATIENT
  Age: 82 Year
  Sex: Male
  Weight: 61 kg

DRUGS (9)
  1. METOPROLOL TARTRATE [Concomitant]
  2. ISMN [Concomitant]
  3. PANTOPRAZOLE [Concomitant]
  4. AMLODIPINE [Concomitant]
  5. ATORVASTATIN [Concomitant]
  6. CLOPIDOGREL [Concomitant]
  7. ASPIRIN [Suspect]
     Indication: ILL-DEFINED DISORDER
  8. RAMIPRIL [Concomitant]
  9. RIVAROXABAN [Suspect]
     Indication: ATRIAL FIBRILLATION
     Route: 048
     Dates: start: 20120330, end: 20120410

REACTIONS (3)
  - ANAEMIA [None]
  - HAEMATOMA [None]
  - ANGINA PECTORIS [None]
